FAERS Safety Report 17799616 (Version 1)
Quarter: 2020Q2

REPORT INFORMATION
  Report Type: Report from Study
  Country: ES (occurrence: ES)
  Receive Date: 20200518
  Receipt Date: 20200518
  Transmission Date: 20200714
  Serious: Yes (Hospitalization)
  Sender: FDA-Public Use
  Company Number: ES-MYLANLABS-2020M1048621

PATIENT
  Age: 37 Year
  Sex: Male

DRUGS (2)
  1. ESPIRONOLACTONA [Suspect]
     Active Substance: SPIRONOLACTONE
     Indication: ASCITES
     Dosage: 25 MILLIGRAM, QD
     Route: 048
     Dates: start: 20170512
  2. FUROSEMIDE. [Suspect]
     Active Substance: FUROSEMIDE
     Indication: ASCITES
     Dosage: 40 MILLIGRAM, QD
     Route: 048
     Dates: start: 20170512

REACTIONS (1)
  - Acute kidney injury [Recovered/Resolved]

NARRATIVE: CASE EVENT DATE: 201706
